FAERS Safety Report 16383036 (Version 1)
Quarter: 2019Q2

REPORT INFORMATION
  Report Type: Spontaneous
  Country: DK (occurrence: DK)
  Receive Date: 20190603
  Receipt Date: 20190603
  Transmission Date: 20190711
  Serious: Yes (Hospitalization)
  Sender: FDA-Public Use
  Company Number: DK-009507513-1906DNK000076

PATIENT
  Age: 63 Year
  Sex: Male

DRUGS (6)
  1. DIPYRIDAMOLE. [Concomitant]
     Active Substance: DIPYRIDAMOLE
     Indication: THROMBOSIS PROPHYLAXIS
     Dosage: 400 MILLIGRAM, QD
     Route: 048
  2. KEYTRUDA [Suspect]
     Active Substance: PEMBROLIZUMAB
     Indication: BLADDER CANCER
     Dosage: 100 MILLIGRAM
     Route: 042
     Dates: start: 201901
  3. ASPIRIN. [Concomitant]
     Active Substance: ASPIRIN
     Indication: THROMBOSIS PROPHYLAXIS
     Dosage: 75 MILLIGRAM, QD
     Route: 048
     Dates: start: 20160120
  4. SPIOLTO RESPIMAT [Concomitant]
     Active Substance: OLODATEROL HYDROCHLORIDE\TIOTROPIUM BROMIDE MONOHYDRATE
     Indication: CHRONIC OBSTRUCTIVE PULMONARY DISEASE
     Dosage: 2 DOSAGE FORM, QD;PHARMACEUTICAL FORM: INHALATION SOLUTION
     Route: 055
     Dates: start: 20180825
  5. BRICANYL [Concomitant]
     Active Substance: TERBUTALINE SULFATE
     Indication: BRONCHOSPASM
     Dosage: STRENGTH:0.5 MG/DOSE. DOSE: 1 INHALATION AS NECESSARY, MAXIMUM ONCE DAILY
     Route: 055
     Dates: start: 20180824
  6. DOMPERIDONE [Concomitant]
     Active Substance: DOMPERIDONE
     Indication: ADVERSE DRUG REACTION
     Dosage: STRENGTH: 10 MG. DOSE: 1 TABLET AS NECESSARY, MAXIMUM THREE TIMES DAILY
     Route: 048
     Dates: start: 20190111

REACTIONS (2)
  - Scrotal abscess [Recovering/Resolving]
  - Scrotal operation [Recovered/Resolved]

NARRATIVE: CASE EVENT DATE: 201905
